FAERS Safety Report 9291220 (Version 5)
Quarter: 2015Q3

REPORT INFORMATION
  Report Type: Spontaneous
  Country: US (occurrence: US)
  Receive Date: 20130515
  Receipt Date: 20150911
  Transmission Date: 20151125
  Serious: Yes (Hospitalization, Disabling, Other)
  Sender: FDA-Public Use
  Company Number: US-009507513-1305USA005514

PATIENT
  Sex: Female
  Weight: 98.87 kg

DRUGS (2)
  1. ALENDRONATE SODIUM. [Suspect]
     Active Substance: ALENDRONATE SODIUM
     Indication: OSTEOPOROSIS
     Dosage: 70 MG, QW
     Route: 048
     Dates: start: 200808, end: 201105
  2. FOSAMAX [Suspect]
     Active Substance: ALENDRONATE SODIUM
     Indication: OSTEOPOROSIS
     Dosage: 70 MG, QW
     Route: 048
     Dates: start: 200203, end: 200808

REACTIONS (35)
  - Femur fracture [Unknown]
  - Back injury [Unknown]
  - Bursitis [Unknown]
  - Intramedullary rod insertion [Unknown]
  - Back pain [Not Recovered/Not Resolved]
  - Diverticulum [Unknown]
  - Muscle spasms [Unknown]
  - Sciatica [Unknown]
  - Phlebitis [Unknown]
  - Diabetes mellitus [Unknown]
  - Arthralgia [Unknown]
  - Device extrusion [Unknown]
  - Low turnover osteopathy [Not Recovered/Not Resolved]
  - Pathological fracture [Unknown]
  - Intervertebral disc protrusion [Unknown]
  - Spinal compression fracture [Unknown]
  - Peripheral swelling [Unknown]
  - Iron deficiency anaemia [Unknown]
  - Cataract operation [Unknown]
  - Lipoma excision [Unknown]
  - Femur fracture [Recovered/Resolved with Sequelae]
  - Hypotension [Unknown]
  - Constipation [Unknown]
  - Upper-airway cough syndrome [Unknown]
  - Otitis media [Unknown]
  - Asthma [Unknown]
  - Osteopenia [Unknown]
  - Compression fracture [Unknown]
  - Eyelid ptosis [Unknown]
  - Hiatus hernia [Unknown]
  - Spinal osteoarthritis [Unknown]
  - Osteoarthritis [Unknown]
  - Device breakage [Unknown]
  - Bone cyst [Unknown]
  - Varicose vein [Unknown]

NARRATIVE: CASE EVENT DATE: 20020425
